FAERS Safety Report 4971126-9 (Version None)
Quarter: 2006Q1

REPORT INFORMATION
  Report Type: 
  Country: None (occurrence: None)
  Receive Date: 20060227
  Receipt Date: 20050329
  Transmission Date: 20060701
  Serious: Yes (Disabling)
  Sender: FDA-Public Use
  Company Number: WAES 0503USA05160

PATIENT
  Age: 66 Year
  Sex: Male

DRUGS (3)
  1. ZOCOR [Suspect]
     Indication: BLOOD CHOLESTEROL INCREASED
     Dosage: 80 MG/DAILY/PO ; 40 MG/DAILY/PO
     Route: 048
     Dates: end: 20040101
  2. ZOCOR [Suspect]
     Indication: BLOOD CHOLESTEROL INCREASED
     Dosage: 80 MG/DAILY/PO ; 40 MG/DAILY/PO
     Route: 048
     Dates: start: 20040101, end: 20050326
  3. AVANDIA [Concomitant]

REACTIONS (1)
  - ASTHENIA [None]
